FAERS Safety Report 5321963-6 (Version None)
Quarter: 2007Q2

REPORT INFORMATION
  Report Type: 
  Country: None (occurrence: None)
  Receive Date: 20070511
  Receipt Date: 20070502
  Transmission Date: 20071010
  Serious: Yes (Hospitalization)
  Sender: FDA-Public Use
  Company Number: PHEH2007US06905

PATIENT
  Age: 58 Year
  Sex: Male

DRUGS (13)
  1. COMTAN [Suspect]
     Indication: PARKINSON'S DISEASE
     Dosage: 200 MG, QID
     Route: 048
  2. WARFARIN SODIUM [Suspect]
     Indication: THROMBOSIS
     Dosage: 2.5 MG, UNK
     Dates: start: 20070406, end: 20070406
  3. WARFARIN SODIUM [Suspect]
     Dosage: 5 MG, UNK
     Dates: start: 20070407, end: 20070407
  4. WARFARIN SODIUM [Suspect]
     Dosage: 2.5 MG, UNK
     Route: 048
     Dates: start: 20070408, end: 20070408
  5. WARFARIN SODIUM [Suspect]
     Dates: start: 20070409, end: 20070409
  6. WARFARIN SODIUM [Suspect]
     Dosage: 7.5 MG, QD
     Dates: start: 20070330, end: 20070403
  7. SINEMET [Suspect]
     Indication: PARKINSON'S DISEASE
     Dosage: 6.5 TABS DAILY
     Route: 048
  8. SINEMET CR [Suspect]
     Indication: PARKINSON'S DISEASE
     Dosage: 2 TABS DAILY
     Route: 048
  9. TRIHEXYPHENIDYL HCL [Suspect]
     Indication: PARKINSON'S DISEASE
     Dosage: 2 MG, BID
     Route: 048
  10. AMBIEN [Suspect]
  11. REQUIP [Suspect]
  12. CALCIUM CHLORIDE [Concomitant]
  13. VITAMIN CAP [Concomitant]

REACTIONS (11)
  - ASTHENIA [None]
  - BACK PAIN [None]
  - DEEP VEIN THROMBOSIS [None]
  - DISEASE PROGRESSION [None]
  - DRUG INTERACTION [None]
  - DYSSTASIA [None]
  - INSOMNIA [None]
  - MUSCLE RIGIDITY [None]
  - PAIN [None]
  - RESTLESSNESS [None]
  - VENA CAVA FILTER INSERTION [None]
